FAERS Safety Report 6907086-0 (Version None)
Quarter: 2010Q3

REPORT INFORMATION
  Report Type: 
  Country: None (occurrence: None)
  Receive Date: 20100804
  Receipt Date: 20081112
  Transmission Date: 20110219
  Serious: Yes (Death)
  Sender: FDA-Public Use
  Company Number: US-PFIZER INC-2008095899

PATIENT
  Sex: Female

DRUGS (3)
  1. ADRIAMYCIN PFS [Suspect]
     Indication: BREAST CANCER
     Dosage: CYC
     Dates: start: 20080901, end: 20080901
  2. TAXOTERE [Suspect]
     Indication: BREAST CANCER
     Dosage: CYC
     Dates: start: 20080901, end: 20080901
  3. CYTOXAN [Suspect]
     Indication: BREAST CANCER
     Dosage: CYC
     Dates: start: 20080901, end: 20080901

REACTIONS (2)
  - INTESTINAL PERFORATION [None]
  - SEPSIS [None]
